FAERS Safety Report 12187468 (Version 1)
Quarter: 2016Q1

REPORT INFORMATION
  Report Type: Report from Study
  Country: TH (occurrence: TH)
  Receive Date: 20160317
  Receipt Date: 20160317
  Transmission Date: 20160526
  Serious: Yes (Other)
  Sender: FDA-Public Use
  Company Number: TH-SUN PHARMACEUTICAL INDUSTRIES LTD-2016R1-112842

PATIENT
  Age: 84 Year
  Sex: Male

DRUGS (4)
  1. ISONIAZID. [Suspect]
     Active Substance: ISONIAZID
     Indication: PRODUCT USED FOR UNKNOWN INDICATION
     Route: 065
  2. PYRAZINAMIDE. [Suspect]
     Active Substance: PYRAZINAMIDE
     Indication: PRODUCT USED FOR UNKNOWN INDICATION
     Route: 065
  3. RIFAMPICIN [Suspect]
     Active Substance: RIFAMPIN
     Indication: PRODUCT USED FOR UNKNOWN INDICATION
     Route: 065
  4. ETHAMBUTOL [Suspect]
     Active Substance: ETHAMBUTOL HYDROCHLORIDE
     Indication: PRODUCT USED FOR UNKNOWN INDICATION
     Route: 065

REACTIONS (1)
  - Acute generalised exanthematous pustulosis [Recovered/Resolved]
